FAERS Safety Report 17588728 (Version 4)
Quarter: 2021Q2

REPORT INFORMATION
  Report Type: Spontaneous
  Country: BR (occurrence: BR)
  Receive Date: 20200327
  Receipt Date: 20210618
  Transmission Date: 20210716
  Serious: Yes (Hospitalization, Other)
  Sender: FDA-Public Use
  Company Number: BR-ALEXION PHARMACEUTICALS INC.-A202002430

PATIENT
  Sex: Female
  Weight: 65 kg

DRUGS (6)
  1. ESCITALOPRAM OXALATE. [Concomitant]
     Active Substance: ESCITALOPRAM OXALATE
     Indication: DEPRESSION
     Dosage: 1 TABLET EVERY NIGHT
     Route: 048
  2. SOLIRIS [Suspect]
     Active Substance: ECULIZUMAB
     Indication: PAROXYSMAL NOCTURNAL HAEMOGLOBINURIA
     Dosage: 600 MG, QW, FOR 4 WEEKS
     Route: 065
     Dates: start: 201903
  3. SOLIRIS [Suspect]
     Active Substance: ECULIZUMAB
     Dosage: 900 MG, EVERY 15 DAYS
     Route: 065
     Dates: start: 20200403
  4. SOLIRIS [Suspect]
     Active Substance: ECULIZUMAB
     Dosage: 900 MG, EVERY 15DAYS
     Route: 065
  5. SOLIRIS [Suspect]
     Active Substance: ECULIZUMAB
     Dosage: 600 MG, QW
     Route: 065
     Dates: start: 20190313
  6. FOLIC ACID. [Concomitant]
     Active Substance: FOLIC ACID
     Indication: ANAEMIA
     Dosage: 1 TABLET AT LUNCH
     Route: 048

REACTIONS (6)
  - Urinary tract infection [Unknown]
  - Headache [Recovering/Resolving]
  - Hepatic steatosis [Recovering/Resolving]
  - Haemoglobin decreased [Recovering/Resolving]
  - Haemolysis [Unknown]
  - Chromaturia [Not Recovered/Not Resolved]

NARRATIVE: CASE EVENT DATE: 202002
